FAERS Safety Report 14195405 (Version 2)
Quarter: 2018Q1

REPORT INFORMATION
  Report Type: Spontaneous
  Country: US (occurrence: US)
  Receive Date: 20171116
  Receipt Date: 20180222
  Transmission Date: 20180508
  Serious: Yes (Other)
  Sender: FDA-Public Use
  Company Number: US-BAYER-2017-218763

PATIENT
  Age: 24 Year
  Sex: Female

DRUGS (2)
  1. SKYLA [Suspect]
     Active Substance: LEVONORGESTREL
     Dosage: 14 MCG/24HR, CONT
     Route: 015
     Dates: start: 2015, end: 201708
  2. KYLEENA [Suspect]
     Active Substance: LEVONORGESTREL
     Dosage: 17.5 MCG/24HR, CONT
     Route: 015
     Dates: start: 20171003, end: 20171024

REACTIONS (4)
  - Device expulsion [None]
  - Genital haemorrhage [None]
  - Device expulsion [None]
  - Amenorrhoea [None]

NARRATIVE: CASE EVENT DATE: 201708
